FAERS Safety Report 7631807-5 (Version None)
Quarter: 2011Q3

REPORT INFORMATION
  Report Type: 
  Country: None (occurrence: None)
  Receive Date: 20110725
  Receipt Date: 20110401
  Transmission Date: 20111222
  Serious: No
  Sender: FDA-Public Use
  Company Number: US-BRISTOL-MYERS SQUIBB COMPANY-15652340

PATIENT
  Age: 43 Year
  Sex: Female

DRUGS (2)
  1. ENOXAPARIN SODIUM [Suspect]
     Indication: THROMBOSIS
     Dates: start: 20110309, end: 20110321
  2. COUMADIN [Suspect]
     Indication: THROMBOSIS
     Dates: start: 20110301

REACTIONS (1)
  - INTERNATIONAL NORMALISED RATIO INCREASED [None]
